FAERS Safety Report 6063482-8 (Version None)
Quarter: 2009Q1

REPORT INFORMATION
  Report Type: 
  Country: None (occurrence: None)
  Receive Date: 20090203
  Receipt Date: 20090129
  Transmission Date: 20090719
  Serious: No
  Sender: FDA-Public Use
  Company Number: US-B.I. PHARMACEUTICALS,INC./RIDGEFIELD-2009-BP-01146BP

PATIENT
  Sex: Female

DRUGS (1)
  1. ZANTAC 150 [Suspect]
     Dosage: 150MG

REACTIONS (3)
  - ABDOMINAL DISCOMFORT [None]
  - FEELING ABNORMAL [None]
  - WRONG TECHNIQUE IN DRUG USAGE PROCESS [None]
